FAERS Safety Report 17095237 (Version 1)
Quarter: 2019Q4

REPORT INFORMATION
  Report Type: Spontaneous
  Country: US (occurrence: US)
  Receive Date: 20191104
  Receipt Date: 20191104
  Transmission Date: 20200122
  Serious: Yes (Hospitalization)
  Sender: FDA-Public Use
  Company Number: None

PATIENT
  Age: 40 Year
  Sex: Male

DRUGS (1)
  1. GLASSIA [Suspect]
     Active Substance: .ALPHA.1-PROTEINASE INHIBITOR HUMAN
     Indication: ALPHA-1 ANTI-TRYPSIN DEFICIENCY
     Dosage: ?          OTHER DOSE:3800U;OTHER ROUTE:PIV GRAVITY?
     Dates: start: 20190501

REACTIONS (2)
  - Ill-defined disorder [None]
  - Medical induction of coma [None]

NARRATIVE: CASE EVENT DATE: 20191024
